FAERS Safety Report 14780149 (Version 3)
Quarter: 2019Q2

REPORT INFORMATION
  Report Type: Spontaneous
  Country: US (occurrence: US)
  Receive Date: 20180419
  Receipt Date: 20190509
  Transmission Date: 20190711
  Serious: Yes (Other)
  Sender: FDA-Public Use
  Company Number: US-ASTRAZENECA-2018SE47118

PATIENT
  Age: 19951 Day
  Sex: Male
  Weight: 94.8 kg

DRUGS (39)
  1. HYDROXYZINE [Concomitant]
     Active Substance: HYDROXYZINE HYDROCHLORIDE
     Dates: start: 20071214, end: 20080115
  2. CIALIS [Concomitant]
     Active Substance: TADALAFIL
     Dates: start: 20130712
  3. METOPROLOL. [Concomitant]
     Active Substance: METOPROLOL
  4. AMITRIPTYLINE [Concomitant]
     Active Substance: AMITRIPTYLINE
     Dates: start: 20080506
  5. NEXIUM [Suspect]
     Active Substance: ESOMEPRAZOLE MAGNESIUM
     Route: 048
     Dates: start: 2012, end: 2017
  6. PRILOSEC [Suspect]
     Active Substance: OMEPRAZOLE MAGNESIUM
     Route: 048
     Dates: start: 20140306
  7. TYLENOL [Concomitant]
     Active Substance: ACETAMINOPHEN
     Indication: HEADACHE
     Dates: start: 2008, end: 2012
  8. PEPCID [Concomitant]
     Active Substance: FAMOTIDINE
  9. METFORMIN [Concomitant]
     Active Substance: METFORMIN HYDROCHLORIDE
     Dates: start: 20061219
  10. VIAGRA [Concomitant]
     Active Substance: SILDENAFIL CITRATE
     Dates: start: 20070907
  11. AMLODIPINE BESYLATE. [Concomitant]
     Active Substance: AMLODIPINE BESYLATE
  12. TRAMADOL. [Concomitant]
     Active Substance: TRAMADOL
  13. NEXIUM [Suspect]
     Active Substance: ESOMEPRAZOLE MAGNESIUM
     Route: 048
     Dates: start: 20070126
  14. CLARITIN [Concomitant]
     Active Substance: LORATADINE
     Dates: start: 20080506
  15. DICYCLOMINE [Concomitant]
     Active Substance: DICYCLOMINE HYDROCHLORIDE
     Dates: start: 20080725, end: 20081027
  16. ZESTRIL [Concomitant]
     Active Substance: LISINOPRIL
     Dates: start: 20130328, end: 20130829
  17. AURALGAN [Concomitant]
     Dates: start: 20130712
  18. CIPRO [Concomitant]
     Active Substance: CIPROFLOXACIN HYDROCHLORIDE
     Dates: start: 20130731, end: 20130805
  19. DOCUSATE SODIUM. [Concomitant]
     Active Substance: DOCUSATE SODIUM
  20. GLUCOVANCE [Concomitant]
     Active Substance: GLYBURIDE\METFORMIN HYDROCHLORIDE
     Dosage: 5-500 MG
     Dates: start: 20071026
  21. PREDNISONE. [Concomitant]
     Active Substance: PREDNISONE
     Dates: start: 20071214, end: 20080115
  22. NORVASC [Concomitant]
     Active Substance: AMLODIPINE BESYLATE
     Dates: start: 20140306
  23. COREG [Concomitant]
     Active Substance: CARVEDILOL
     Dates: start: 20140422
  24. ROBAXIN [Concomitant]
     Active Substance: METHOCARBAMOL
     Dates: start: 20140505
  25. FUROSEMIDE. [Concomitant]
     Active Substance: FUROSEMIDE
  26. NAPROXEN. [Concomitant]
     Active Substance: NAPROXEN
     Indication: PAIN
     Dates: start: 2014
  27. CLINDAMYCIN. [Concomitant]
     Active Substance: CLINDAMYCIN
     Dates: start: 20071214
  28. CHANTIX [Concomitant]
     Active Substance: VARENICLINE TARTRATE
     Dates: start: 20130712
  29. VANTIN [Concomitant]
     Active Substance: CEFPODOXIME PROXETIL
     Dates: start: 20140422
  30. TESSALON [Concomitant]
     Active Substance: BENZONATATE
     Dates: start: 20140422
  31. APRESOLINE HYDROCHLORIDE [Concomitant]
     Active Substance: HYDRALAZINE HYDROCHLORIDE
     Dates: start: 20130728
  32. IBUPROFEN. [Concomitant]
     Active Substance: IBUPROFEN
     Dates: start: 20070807
  33. GLIPIZIDE. [Concomitant]
     Active Substance: GLIPIZIDE
     Dates: start: 20080506
  34. NAPROSYN [Concomitant]
     Active Substance: NAPROXEN
     Dates: start: 20140317
  35. ULTRAM [Concomitant]
     Active Substance: TRAMADOL HYDROCHLORIDE
     Dates: start: 20140422
  36. AMITRIPTYLINE [Concomitant]
     Active Substance: AMITRIPTYLINE
  37. ZANTAC [Concomitant]
     Active Substance: RANITIDINE HYDROCHLORIDE
  38. FLUNISOLIDE. [Concomitant]
     Active Substance: FLUNISOLIDE
     Dates: start: 20080506
  39. ZOCOR [Concomitant]
     Active Substance: SIMVASTATIN
     Dates: start: 20130308, end: 20130627

REACTIONS (5)
  - End stage renal disease [Unknown]
  - Nephrogenic anaemia [Unknown]
  - Chronic kidney disease [Unknown]
  - Hyperparathyroidism secondary [Unknown]
  - Acute kidney injury [Not Recovered/Not Resolved]

NARRATIVE: CASE EVENT DATE: 20130320
